FAERS Safety Report 6808807-8 (Version None)
Quarter: 2010Q2

REPORT INFORMATION
  Report Type: 
  Country: None (occurrence: None)
  Receive Date: 20100630
  Receipt Date: 20090928
  Transmission Date: 20101027
  Serious: No
  Sender: FDA-Public Use
  Company Number: US-PFIZER INC-2009228332

PATIENT
  Age: 56 Year
  Sex: Male
  Weight: 68.9 kg

DRUGS (5)
  1. VIAGRA [Suspect]
     Indication: ERECTILE DYSFUNCTION
     Dosage: 50 MG, UNK
     Route: 048
  2. DEPO-TESTOSTERONE [Concomitant]
     Indication: HYPOGONADISM
     Dosage: UNK
  3. ACIPHEX [Concomitant]
     Indication: GASTROOESOPHAGEAL REFLUX DISEASE
     Dosage: UNK
  4. SERZONE [Concomitant]
     Indication: ANXIETY
     Dosage: UNK
  5. RANITIDINE [Concomitant]
     Indication: GASTROOESOPHAGEAL REFLUX DISEASE
     Dosage: UNK

REACTIONS (2)
  - BLOOD TESTOSTERONE DECREASED [None]
  - PHOTOPSIA [None]
